FAERS Safety Report 5330324-5 (Version None)
Quarter: 2007Q2

REPORT INFORMATION
  Report Type: 
  Country: None (occurrence: None)
  Receive Date: 20070521
  Receipt Date: 20070509
  Transmission Date: 20071010
  Serious: Yes (Disabling, Other)
  Sender: FDA-Public Use
  Company Number: BR-PFIZER INC-2007036891

PATIENT
  Sex: Female

DRUGS (9)
  1. REVATIO [Suspect]
     Indication: PULMONARY HYPERTENSION
     Route: 048
  2. BOSENTAN [Suspect]
     Indication: PULMONARY HYPERTENSION
     Route: 048
  3. ALDACTONE [Concomitant]
     Route: 048
  4. LASIX [Concomitant]
     Route: 048
  5. DIGOXIN [Concomitant]
     Route: 048
  6. ANCORON [Concomitant]
     Route: 048
  7. WARFARIN SODIUM [Concomitant]
     Route: 048
  8. OXYGEN [Concomitant]
  9. VIAGRA [Concomitant]
     Route: 048
     Dates: start: 20030101

REACTIONS (6)
  - FATIGUE [None]
  - GAIT DISTURBANCE [None]
  - INSOMNIA [None]
  - OXYGEN SATURATION DECREASED [None]
  - PAIN [None]
  - PULMONARY HYPERTENSION [None]
